FAERS Safety Report 5861303-7 (Version None)
Quarter: 2008Q3

REPORT INFORMATION
  Report Type: 
  Country: None (occurrence: None)
  Receive Date: 20080827
  Receipt Date: 20080407
  Transmission Date: 20090109
  Serious: No
  Sender: FDA-Public Use
  Company Number: US-ABBOTT-08P-163-0445812-00

PATIENT
  Sex: Female
  Weight: 54.934 kg

DRUGS (7)
  1. NIASPAN [Suspect]
     Indication: MYOCARDIAL INFARCTION
     Dosage: 2000 MG AT BED TIME
     Route: 048
     Dates: start: 20071001
  2. ACETYLSALICYLIC ACID SRT [Concomitant]
     Indication: MYOCARDIAL INFARCTION
     Route: 048
  3. CLOPIDOGREL [Concomitant]
     Indication: MYOCARDIAL INFARCTION
     Dosage: 75 MG DAILY
     Route: 048
  4. AMLODIPINE [Concomitant]
     Indication: MYOCARDIAL INFARCTION
     Dosage: 2.5 MG DAILY
     Route: 048
  5. TRIOBE [Concomitant]
     Indication: MYOCARDIAL INFARCTION
     Route: 048
  6. INEGY [Concomitant]
     Indication: MYOCARDIAL INFARCTION
     Dosage: 10/20 DAILY
     Route: 048
  7. RAMIPRIL [Concomitant]
     Indication: MYOCARDIAL INFARCTION
     Dosage: 10 MG DAILY
     Route: 048

REACTIONS (3)
  - ERYTHEMA [None]
  - PRURITUS [None]
  - SKIN BURNING SENSATION [None]
